FAERS Safety Report 7451895-9 (Version None)
Quarter: 2011Q2

REPORT INFORMATION
  Report Type: 
  Country: None (occurrence: None)
  Receive Date: 20110502
  Receipt Date: 20110420
  Transmission Date: 20111010
  Serious: Yes (Hospitalization)
  Sender: FDA-Public Use
  Company Number: US-MERCK-1104USA02741

PATIENT
  Age: 71 Year
  Sex: Female

DRUGS (2)
  1. ONGLYZA [Suspect]
     Route: 065
  2. JANUVIA [Suspect]
     Route: 048

REACTIONS (2)
  - DEHYDRATION [None]
  - BLOOD GLUCOSE INCREASED [None]
